FAERS Safety Report 8548352-5 (Version None)
Quarter: 2012Q3

REPORT INFORMATION
  Report Type: 
  Country: None (occurrence: None)
  Receive Date: 20120730
  Receipt Date: 20120725
  Transmission Date: 20120928
  Serious: Yes (Death)
  Sender: FDA-Public Use
  Company Number: BE-JNJFOC-20120712209

PATIENT
  Sex: Female

DRUGS (2)
  1. PALIPERIDONE [Suspect]
     Indication: PRODUCT USED FOR UNKNOWN INDICATION
     Dosage: DOSAGE BELIEVED TO BE 50 MG. PATIENT RECEIVED PALIPERIDONE PALMITATE FOR 2 MONTHS
     Route: 030
  2. SEMAP [Suspect]
     Indication: PRODUCT USED FOR UNKNOWN INDICATION
     Route: 065

REACTIONS (2)
  - DRUG INEFFECTIVE [None]
  - COMPLETED SUICIDE [None]
